FAERS Safety Report 5102402-7 (Version None)
Quarter: 2006Q3

REPORT INFORMATION
  Report Type: 
  Country: None (occurrence: None)
  Receive Date: 20060907
  Receipt Date: 20060822
  Transmission Date: 20061208
  Serious: Yes (Hospitalization, Disabling, Other)
  Sender: FDA-Public Use
  Company Number: US200608004620

PATIENT

DRUGS (2)
  1. HUMULIN 70/30 [Suspect]
     Indication: DIABETES MELLITUS
     Dosage: 45 U, 3/D
     Dates: start: 19920101, end: 20060801
  2. HUMALOG MIX 75/25 [Concomitant]

REACTIONS (11)
  - BLINDNESS [None]
  - DIABETIC COMPLICATION [None]
  - EYE BURNS [None]
  - EYE HAEMORRHAGE [None]
  - EYE INFECTION VIRAL [None]
  - GANGRENE [None]
  - INJURY CORNEAL [None]
  - ROAD TRAFFIC ACCIDENT [None]
  - SCAB [None]
  - SKIN LACERATION [None]
  - TOE AMPUTATION [None]
